FAERS Safety Report 4824855-1 (Version None)
Quarter: 2005Q4

REPORT INFORMATION
  Report Type: 
  Country: None (occurrence: None)
  Receive Date: 20051110
  Receipt Date: 20031031
  Transmission Date: 20060501
  Serious: Yes (Other)
  Sender: FDA-Public Use
  Company Number: BR-GLAXOSMITHKLINE-A0432779A

PATIENT
  Age: 44 Year
  Sex: Female

DRUGS (1)
  1. NICORETTE [Suspect]
     Indication: SMOKING CESSATION THERAPY
     Dosage: 2MG FIFTEEN TIMES PER DAY
     Route: 002
     Dates: start: 20000101

REACTIONS (11)
  - AGEUSIA [None]
  - APHASIA [None]
  - BONE DISORDER [None]
  - CRYING [None]
  - DRUG DEPENDENCE [None]
  - EAR PAIN [None]
  - GINGIVAL INFECTION [None]
  - PHARYNGEAL ERYTHEMA [None]
  - PYREXIA [None]
  - STOMATITIS [None]
  - TREMOR [None]
